FAERS Safety Report 6894510-5 (Version None)
Quarter: 2010Q3

REPORT INFORMATION
  Report Type: 
  Country: None (occurrence: None)
  Receive Date: 20100802
  Receipt Date: 20100728
  Transmission Date: 20110219
  Serious: Yes (Death, Life-Threatening)
  Sender: FDA-Public Use
  Company Number: US-SANOFI-AVENTIS-2010SA033462

PATIENT
  Age: 76 Year
  Sex: Male
  Weight: 97.1 kg

DRUGS (9)
  1. LOVENOX [Suspect]
     Dosage: TOTAL OF 6 DOSES
     Route: 058
     Dates: start: 20100526, end: 20100531
  2. LOVENOX [Suspect]
     Route: 058
     Dates: start: 20100624, end: 20100625
  3. SINGULAIR [Concomitant]
  4. SOLU-MEDROL [Concomitant]
  5. THEO-DUR [Concomitant]
  6. ALBUTEROL [Concomitant]
  7. TYLENOL [Concomitant]
  8. MELATONIN [Concomitant]
  9. SACCHAROMYCES BOULARDII [Concomitant]
     Route: 048

REACTIONS (6)
  - ABDOMINAL PAIN LOWER [None]
  - ABDOMINAL WALL HAEMATOMA [None]
  - DEATH [None]
  - NAUSEA [None]
  - UNRESPONSIVE TO STIMULI [None]
  - VOMITING [None]
